FAERS Safety Report 8514219-1 (Version None)
Quarter: 2012Q3

REPORT INFORMATION
  Report Type: 
  Country: None (occurrence: None)
  Receive Date: 20120717
  Receipt Date: 20120709
  Transmission Date: 20120928
  Serious: Yes (Other)
  Sender: FDA-Public Use
  Company Number: US-BAYER-2011-097337

PATIENT
  Age: 29 Year
  Sex: Female
  Weight: 104.31 kg

DRUGS (13)
  1. HUMALOG [Concomitant]
     Indication: DIABETES MELLITUS
     Dosage: UNK
     Dates: start: 19870101
  2. DROSPIRENONE AND ETHINYL ESTRADIOL [Suspect]
     Indication: MENORRHAGIA
     Dosage: UNK
     Dates: start: 20080901, end: 20090901
  3. YAZ [Suspect]
     Indication: PAIN
  4. DROSPIRENONE AND ETHINYL ESTRADIOL [Suspect]
     Indication: PAIN
  5. FLEXERIL [Concomitant]
  6. YAZ [Suspect]
     Indication: MENORRHAGIA
     Dosage: UNK
     Dates: start: 20080901, end: 20090901
  7. DILAUDID [Concomitant]
     Indication: MIGRAINE
     Dosage: UNK
     Dates: start: 20090501
  8. DARVOCET [Concomitant]
     Dosage: UNK
     Dates: start: 20090912
  9. VASOTEC [Concomitant]
     Dosage: UNK
     Dates: start: 19970101
  10. FLEXERIL [Concomitant]
     Dosage: UNK
     Dates: start: 20090912
  11. SIMVASTATIN [Concomitant]
     Dosage: UNK
     Dates: start: 20080101
  12. VALIUM [Concomitant]
     Indication: ANXIETY
     Dosage: UNK
     Dates: start: 20100101
  13. ATIVAN [Concomitant]
     Dosage: UNK
     Dates: start: 20090912

REACTIONS (6)
  - INJURY [None]
  - ANXIETY [None]
  - EMOTIONAL DISTRESS [None]
  - PORTAL VEIN THROMBOSIS [None]
  - PAIN [None]
  - DEPRESSION [None]
